FAERS Safety Report 10362133 (Version 1)
Quarter: 2014Q1

REPORT INFORMATION
  Report Type: Spontaneous
  Country: US (occurrence: None)
  Receive Date: 20140306
  Receipt Date: 20140306
  Transmission Date: 20141002
  Serious: Yes (Hospitalization, Other)
  Sender: FDA-Public Use
  Company Number: 163-21880-13083754

PATIENT
  Age: 66 Year
  Sex: Male
  Weight: 81.6 kg

DRUGS (6)
  1. REVLIMID (LENALIDOMIDE) (10 MILLIGRAM, CAPSULES) [Suspect]
     Indication: PLASMA CELL MYELOMA
     Dosage: 10 MG. 28 IN 28 D, PO  07/25/2013 - UNKNOWN THERAPY DATE
     Route: 048
     Dates: start: 20130725
  2. ACYCLOVIR [Concomitant]
  3. ASPRIN (ACETYLSALICYLIC ACID) [Concomitant]
  4. TEMAZEPAM [Concomitant]
  5. LORATADINE [Concomitant]
  6. MOISTURIZING LOTION (PARAFFIN) [Concomitant]

REACTIONS (8)
  - Loss of consciousness [None]
  - Weight decreased [None]
  - Body height decreased [None]
  - Dry skin [None]
  - Somnolence [None]
  - Rash [None]
  - Fatigue [None]
  - Pruritus [None]
